FAERS Safety Report 5238504-4 (Version None)
Quarter: 2007Q1

REPORT INFORMATION
  Report Type: 
  Country: None (occurrence: None)
  Receive Date: 20070215
  Receipt Date: 20070208
  Transmission Date: 20070707
  Serious: Yes (Hospitalization)
  Sender: FDA-Public Use
  Company Number: SEWYE608509FEB07

PATIENT
  Sex: Male
  Weight: 88 kg

DRUGS (1)
  1. TAZOCIN [Suspect]
     Indication: INFECTION
     Route: 042
     Dates: start: 20061112, end: 20061222

REACTIONS (3)
  - HAEMORRHAGIC DIATHESIS [None]
  - MUCOSAL HAEMORRHAGE [None]
  - SKIN HAEMORRHAGE [None]
